FAERS Safety Report 22203554 (Version 7)
Quarter: 2023Q2

REPORT INFORMATION
  Report Type: Report from Study
  Country: US (occurrence: US)
  Receive Date: 20230412
  Receipt Date: 20230605
  Transmission Date: 20230722
  Serious: No
  Sender: FDA-Public Use
  Company Number: US-002147023-NVSC2023US084537

PATIENT
  Age: 68 Year
  Sex: Male
  Weight: 104.31 kg

DRUGS (4)
  1. TREPROSTINIL [Suspect]
     Active Substance: TREPROSTINIL
     Indication: Pulmonary arterial hypertension
     Dosage: UNK (10 NG/KG/ MIN)
     Route: 042
     Dates: start: 20230403
  2. TREPROSTINIL [Suspect]
     Active Substance: TREPROSTINIL
     Dosage: UNK (16 NG/KG/ MIN) (CONTINOUS)
     Route: 042
  3. OPSUMIT [Concomitant]
     Active Substance: MACITENTAN
     Indication: Product used for unknown indication
     Dosage: UNK
     Route: 065
  4. TADALAFIL [Concomitant]
     Active Substance: TADALAFIL
     Indication: Product used for unknown indication
     Dosage: UNK
     Route: 065

REACTIONS (11)
  - Oedema peripheral [Unknown]
  - Influenza like illness [Unknown]
  - Malaise [Unknown]
  - Mobility decreased [Unknown]
  - Weight decreased [Unknown]
  - Heart rate decreased [Unknown]
  - Arthralgia [Unknown]
  - Diarrhoea [Unknown]
  - Dyspnoea [Unknown]
  - Oedema [Unknown]
  - Pain in jaw [Unknown]

NARRATIVE: CASE EVENT DATE: 20230525
